FAERS Safety Report 24127905 (Version 1)
Quarter: 2024Q3

REPORT INFORMATION
  Report Type: Spontaneous
  Country: DE (occurrence: DE)
  Receive Date: 20240723
  Receipt Date: 20240723
  Transmission Date: 20241017
  Serious: Yes (Hospitalization)
  Sender: AMGEN
  Company Number: DE-SAMSUNG BIOEPIS-SB-2024-20902

PATIENT
  Sex: Male
  Weight: 79 kg

DRUGS (6)
  1. TRASTUZUMAB [Suspect]
     Active Substance: TRASTUZUMAB
     Indication: Oesophageal adenocarcinoma
     Dosage: 640 MILLIGRAM (D1: 8 MG/KG, IV; 6 MG/KG IV D22/D43 PRE-AND POST OP, AFTERWARDS 6 MG/KG IV D1 Q3W)
     Route: 040
     Dates: start: 20231106
  2. FLUOROURACIL [Suspect]
     Active Substance: FLUOROURACIL
     Indication: Oesophageal adenocarcinoma
     Dosage: 2600 MG/M2, IV, D1/D15/D29 AND D43 PRE-AND POST OP
     Route: 040
     Dates: start: 20231106, end: 20240404
  3. OXALIPLATIN [Suspect]
     Active Substance: OXALIPLATIN
     Indication: Oesophageal adenocarcinoma
     Dosage: 174 MILLIGRAM (85 MG/M2, IV, D1/D15/D29 AND D43 PRE-AND POST OP)
     Route: 040
     Dates: start: 20231106
  4. DOCETAXEL [Suspect]
     Active Substance: DOCETAXEL\DOCETAXEL ANHYDROUS
     Indication: Oesophageal adenocarcinoma
     Dosage: 102 MILLIGRAM (50 MG/M2, IV, D1/D15/D29 AND D43 PRE-AND POST OP)
     Route: 040
     Dates: start: 20231106, end: 20240404
  5. PEMBROLIZUMAB [Suspect]
     Active Substance: PEMBROLIZUMAB
     Indication: Oesophageal adenocarcinoma
     Dosage: 200 MG FLAT DOSE, IV, D1/D22/D43 PRE-AND POST OP, AFTERWARDS D1 Q3W
     Route: 040
     Dates: start: 20231106
  6. LEUCOVORIN [Suspect]
     Active Substance: LEUCOVORIN\LEUCOVORIN CALCIUM
     Indication: Oesophageal adenocarcinoma
     Dosage: 409 MILLIGRAM (200 MG/M2, IV, D1/D15/D29 AND D43 PRE-AND POST OP)
     Route: 040
     Dates: start: 20231106, end: 20240404

REACTIONS (1)
  - Impaired gastric emptying [Recovered/Resolved]

NARRATIVE: CASE EVENT DATE: 20240625
